FAERS Safety Report 5647131-6 (Version None)
Quarter: 2008Q1

REPORT INFORMATION
  Report Type: 
  Country: None (occurrence: None)
  Receive Date: 20080228
  Receipt Date: 20080228
  Transmission Date: 20080703
  Serious: Yes (Hospitalization)
  Sender: FDA-Public Use
  Company Number: None

PATIENT
  Age: 89 Year
  Sex: Male

DRUGS (2)
  1. ABRAXANE [Suspect]
     Indication: MALIGNANT MELANOMA
     Dosage: 150MG/M^2  QWK, 3WK ON 1WKOFF  IV DRIP
     Route: 041
     Dates: start: 20071024, end: 20080226
  2. AVASTIN [Suspect]
     Dosage: 100MG/KG  90MIN Q2WEEKS  IV DRIP
     Route: 041

REACTIONS (3)
  - HAEMOPTYSIS [None]
  - ORAL INTAKE REDUCED [None]
  - SOMNOLENCE [None]
